FAERS Safety Report 6726400-2 (Version None)
Quarter: 2010Q2

REPORT INFORMATION
  Report Type: 
  Country: None (occurrence: None)
  Receive Date: 20100514
  Receipt Date: 20100511
  Transmission Date: 20101027
  Serious: Yes (Hospitalization)
  Sender: FDA-Public Use
  Company Number: B0652545A

PATIENT
  Age: 90 Year
  Sex: Female
  Weight: 71 kg

DRUGS (2)
  1. CLAMOXYL [Suspect]
     Dosage: 2G SIX TIMES PER DAY
     Route: 048
     Dates: start: 20100402, end: 20100407
  2. ROCEPHIN [Suspect]
     Dosage: 2G PER DAY
     Route: 042
     Dates: start: 20100402, end: 20100407

REACTIONS (1)
  - RENAL FAILURE ACUTE [None]
